FAERS Safety Report 25892855 (Version 1)
Quarter: 2025Q4

REPORT INFORMATION
  Report Type: Spontaneous
  Country: US (occurrence: US)
  Receive Date: 20251007
  Receipt Date: 20251007
  Transmission Date: 20260117
  Serious: No
  Sender: BAUSCH AND LOMB
  Company Number: US-BAUSCHBL-2025BNL029547

PATIENT
  Sex: Female

DRUGS (6)
  1. KETOTIFEN [Suspect]
     Active Substance: KETOTIFEN
     Indication: Mast cell activation syndrome
  2. CROMOLYN [Suspect]
     Active Substance: CROMOLYN
     Indication: Mast cell activation syndrome
  3. MONTELUKAST [Suspect]
     Active Substance: MONTELUKAST
     Indication: Mast cell activation syndrome
  4. IMATINIB [Suspect]
     Active Substance: IMATINIB
     Indication: Mast cell activation syndrome
     Dosage: (CBD +/- THC)
  5. HYDROXYUREA [Suspect]
     Active Substance: HYDROXYUREA
     Indication: Mast cell activation syndrome
  6. NALTREXONE [Concomitant]
     Active Substance: NALTREXONE
     Indication: Mast cell activation syndrome
     Dosage: LOW DOSE

REACTIONS (1)
  - Therapy non-responder [Unknown]
